FAERS Safety Report 19106995 (Version 1)
Quarter: 2021Q2

REPORT INFORMATION
  Report Type: Spontaneous
  Country: JP (occurrence: JP)
  Receive Date: 20210408
  Receipt Date: 20210408
  Transmission Date: 20210717
  Serious: Yes (Other)
  Sender: FDA-Public Use
  Company Number: JP-PFIZER INC-2021355487

PATIENT
  Age: 20 Year
  Sex: Female

DRUGS (1)
  1. EFFEXOR [Suspect]
     Active Substance: VENLAFAXINE HYDROCHLORIDE
     Indication: DEPRESSION
     Route: 048

REACTIONS (4)
  - Suicide attempt [Unknown]
  - Pyrexia [Recovered/Resolved]
  - Intentional overdose [Unknown]
  - Blood creatine phosphokinase increased [Recovered/Resolved]
